FAERS Safety Report 5165404-0 (Version None)
Quarter: 2006Q4

REPORT INFORMATION
  Report Type: 
  Country: None (occurrence: None)
  Receive Date: 20061128
  Receipt Date: 20061115
  Transmission Date: 20070319
  Serious: Yes (Hospitalization)
  Sender: FDA-Public Use
  Company Number: 2006142094

PATIENT

DRUGS (1)
  1. NEURONTIN [Suspect]
     Dosage: ORAL
     Route: 048

REACTIONS (1)
  - GASTROSTOMY TUBE INSERTION [None]
